FAERS Safety Report 17634172 (Version 2)
Quarter: 2020Q2

REPORT INFORMATION
  Report Type: Report from Study
  Country: EG (occurrence: EG)
  Receive Date: 20200407
  Receipt Date: 20200429
  Transmission Date: 20200713
  Serious: Yes (Other)
  Sender: FDA-Public Use
  Company Number: EG-REGENERON PHARMACEUTICALS, INC.-2020-28189

PATIENT

DRUGS (3)
  1. EYLEA [Suspect]
     Active Substance: AFLIBERCEPT
     Indication: AGE-RELATED MACULAR DEGENERATION
     Dosage: UNK, EACH EYE EVERY OTHER MONTH, TOTAL NUMBER OF INJECTIONS IS 17 (10 RIGHT AND 7 LEFT)
     Route: 031
     Dates: end: 20190926
  2. EYLEA [Suspect]
     Active Substance: AFLIBERCEPT
     Indication: RETINAL VASCULAR OCCLUSION
     Dosage: 1 DF, ONCE, RIGHT EYE, LAST INJECTION
     Route: 031
     Dates: start: 20190926, end: 20190926
  3. EYLEA [Suspect]
     Active Substance: AFLIBERCEPT
     Indication: EYE HAEMATOMA
     Dosage: 1 DF, ONCE, RIGHT EYE
     Route: 031
     Dates: start: 20190824, end: 20190824

REACTIONS (5)
  - Blindness unilateral [Not Recovered/Not Resolved]
  - Cell death [Not Recovered/Not Resolved]
  - Visual impairment [Not Recovered/Not Resolved]
  - Inappropriate schedule of product administration [Unknown]
  - Drug ineffective [Unknown]

NARRATIVE: CASE EVENT DATE: 201910
